FAERS Safety Report 4780072-5 (Version None)
Quarter: 2005Q3

REPORT INFORMATION
  Report Type: 
  Country: None (occurrence: None)
  Receive Date: 20050914
  Receipt Date: 20050706
  Transmission Date: 20060218
  Serious: Yes (Other)
  Sender: FDA-Public Use
  Company Number: 163-20785-05070134

PATIENT

DRUGS (3)
  1. THALOMID [Suspect]
     Indication: MULTIPLE MYELOMA
     Dosage: 200-400MG/D PO STARTING ON DAY 4, INDUCTION PHASE
     Route: 048
     Dates: start: 20030217, end: 20030101
  2. GENASENSE [Suspect]
     Indication: MULTIPLE MYELOMA
     Dosage: 7MG/KG/D CIV ON DAYS 1-7, 22-28, AND 43-49, INDUCTION PHASE, INTRAVENOUS DRIP
     Route: 041
     Dates: start: 20030214, end: 20030101
  3. DEXAMETHASONE [Suspect]
     Indication: MULTIPLE MYELOMA
     Dosage: 40MG/D PO ON DAYS 4-7, 25-28, AND 46-49, INDUCTION PHASE
     Route: 048
     Dates: start: 20030217, end: 20030101

REACTIONS (6)
  - BACK PAIN [None]
  - DIZZINESS [None]
  - HAEMOGLOBIN DECREASED [None]
  - NAUSEA [None]
  - PERIPHERAL ISCHAEMIA [None]
  - SYNCOPE [None]
